FAERS Safety Report 8169935-0 (Version None)
Quarter: 2012Q1

REPORT INFORMATION
  Report Type: 
  Country: None (occurrence: None)
  Receive Date: 20120228
  Receipt Date: 20120228
  Transmission Date: 20120608
  Serious: No
  Sender: FDA-Public Use
  Company Number: None

PATIENT

DRUGS (1)
  1. SWEETEASE NATURAL [Suspect]
     Indication: PAIN MANAGEMENT
     Dates: start: 20120101, end: 20120130

REACTIONS (2)
  - PRODUCT QUALITY ISSUE [None]
  - PRODUCT CONTAMINATION MICROBIAL [None]
